FAERS Safety Report 8130067-9 (Version None)
Quarter: 2012Q1

REPORT INFORMATION
  Report Type: 
  Country: None (occurrence: None)
  Receive Date: 20120210
  Receipt Date: 20120130
  Transmission Date: 20120608
  Serious: Yes (Other)
  Sender: FDA-Public Use
  Company Number: CHPA2012US002422

PATIENT
  Age: 48 Year
  Sex: Female

DRUGS (1)
  1. EXCEDRIN MIGRAINE CAPLETS [Suspect]
     Indication: MIGRAINE
     Dosage: 2 DF, ONCE/SINGLE
     Route: 048
     Dates: start: 20120128, end: 20120128

REACTIONS (3)
  - EUPHORIC MOOD [None]
  - VISUAL IMPAIRMENT [None]
  - VOMITING [None]
